FAERS Safety Report 25045330 (Version 1)
Quarter: 2025Q1

REPORT INFORMATION
  Report Type: Spontaneous
  Country: JP (occurrence: JP)
  Receive Date: 20250306
  Receipt Date: 20250306
  Transmission Date: 20250409
  Serious: Yes (Hospitalization, Other)
  Sender: ALEXION PHARMACEUTICALS
  Company Number: JP-ASTELLAS-2025-AER-011639

PATIENT
  Age: 89 Year

DRUGS (1)
  1. SEROQUEL [Suspect]
     Active Substance: QUETIAPINE FUMARATE
     Indication: Product used for unknown indication
     Route: 065

REACTIONS (4)
  - Pyelonephritis acute [Unknown]
  - Pneumonia [Unknown]
  - Diabetes mellitus [Unknown]
  - Contraindicated product administered [Unknown]
